FAERS Safety Report 6734543-2 (Version None)
Quarter: 2010Q2

REPORT INFORMATION
  Report Type: 
  Country: None (occurrence: None)
  Receive Date: 20100520
  Receipt Date: 20100510
  Transmission Date: 20101027
  Serious: Yes (Other)
  Sender: FDA-Public Use
  Company Number: BR-GENENTECH-297788

PATIENT
  Sex: Female
  Weight: 65 kg

DRUGS (10)
  1. MABTHERA [Suspect]
     Indication: SYSTEMIC LUPUS ERYTHEMATOSUS
     Dosage: UNK
     Route: 042
     Dates: start: 20070101, end: 20100101
  2. MABTHERA [Suspect]
     Route: 042
  3. CELLCEPT [Suspect]
     Indication: DRUG USE FOR UNKNOWN INDICATION
     Dosage: UNK
     Route: 065
     Dates: start: 20070101
  4. LIPITOR [Concomitant]
     Indication: DRUG USE FOR UNKNOWN INDICATION
     Dosage: 20 MG, UNK
  5. OMEPRAZOLE [Concomitant]
     Indication: DRUG USE FOR UNKNOWN INDICATION
     Dosage: 40 MG, UNK
  6. TIBOLONE [Concomitant]
     Indication: MENOPAUSE
     Dosage: 2.5 MG, UNK
  7. ALENDRONATE SODIUM [Concomitant]
     Indication: DRUG USE FOR UNKNOWN INDICATION
     Dosage: 70 MG, UNK
  8. AZATHIOPRINE [Concomitant]
     Indication: IMMUNOSUPPRESSION
     Dosage: 100 MG, UNK
  9. AMITRIPTLINE HYDROCHLORIDE TAB [Concomitant]
     Indication: DRUG USE FOR UNKNOWN INDICATION
  10. ESTRADIOL [Concomitant]
     Indication: DRUG USE FOR UNKNOWN INDICATION

REACTIONS (29)
  - ALANINE AMINOTRANSFERASE [None]
  - APHTHOUS STOMATITIS [None]
  - ASPARTATE AMINOTRANSFERASE INCREASED [None]
  - ASTHENIA [None]
  - BLOOD CREATININE ABNORMAL [None]
  - BLOOD PRESSURE INCREASED [None]
  - BONE PAIN [None]
  - CANDIDIASIS [None]
  - CHROMATURIA [None]
  - DECREASED APPETITE [None]
  - DECREASED IMMUNE RESPONSIVENESS [None]
  - DIARRHOEA [None]
  - DYSGEUSIA [None]
  - FATIGUE [None]
  - GAMMA-GLUTAMYLTRANSFERASE INCREASED [None]
  - HAIR COLOUR CHANGES [None]
  - HEPATITIS [None]
  - IRON BINDING CAPACITY TOTAL INCREASED [None]
  - MICTURITION FREQUENCY DECREASED [None]
  - PROTEINURIA [None]
  - PYREXIA [None]
  - RED BLOOD CELLS URINE POSITIVE [None]
  - RETCHING [None]
  - SERUM FERRITIN INCREASED [None]
  - SKIN DISCOLOURATION [None]
  - TINEA PEDIS [None]
  - URINARY CASTS PRESENT [None]
  - WEIGHT DECREASED [None]
  - WEIGHT INCREASED [None]
